FAERS Safety Report 8525872-0 (Version None)
Quarter: 2012Q3

REPORT INFORMATION
  Report Type: 
  Country: None (occurrence: None)
  Receive Date: 20120720
  Receipt Date: 20120713
  Transmission Date: 20120928
  Serious: Yes (Hospitalization)
  Sender: FDA-Public Use
  Company Number: PHHY2012GB061970

PATIENT
  Sex: Female

DRUGS (12)
  1. OMEPRAZOLE [Concomitant]
  2. PROPRANOLOL [Concomitant]
     Dosage: 10 MG
  3. TETRABENAZINE [Concomitant]
  4. ATORVASTATIN [Concomitant]
  5. BENDROFLUMETHIAZIDE [Concomitant]
  6. MIRTAZAPINE [Concomitant]
  7. METOCLOPRAMIDE [Concomitant]
  8. ACRIVASTINE [Concomitant]
  9. BECONASE [Concomitant]
  10. LORAZEPAM [Suspect]
     Dosage: 1 MG, TID
  11. FENOFIBRATE [Concomitant]
  12. RAMIPRIL [Concomitant]

REACTIONS (3)
  - EATING DISORDER [None]
  - FALL [None]
  - MUSCLE CONTRACTIONS INVOLUNTARY [None]
